FAERS Safety Report 10547414 (Version 1)
Quarter: 2014Q4

REPORT INFORMATION
  Report Type: Spontaneous
  Country: US (occurrence: US)
  Receive Date: 20141028
  Receipt Date: 20141028
  Transmission Date: 20150529
  Serious: No
  Sender: FDA-Public Use
  Company Number: US-BIOGENIDEC-2014BI111360

PATIENT
  Age: 64 Year
  Sex: Male

DRUGS (2)
  1. TYSABRI [Suspect]
     Active Substance: NATALIZUMAB
     Indication: MULTIPLE SCLEROSIS
     Route: 042
     Dates: start: 20080111, end: 20090717
  2. TYSABRI [Suspect]
     Active Substance: NATALIZUMAB
     Indication: MULTIPLE SCLEROSIS
     Route: 042

REACTIONS (6)
  - Muscle spasticity [Not Recovered/Not Resolved]
  - Joint swelling [Recovered/Resolved]
  - Joint injury [Recovered/Resolved]
  - Restless legs syndrome [Not Recovered/Not Resolved]
  - Musculoskeletal stiffness [Not Recovered/Not Resolved]
  - Fall [Recovered/Resolved]

NARRATIVE: CASE EVENT DATE: 20141013
